FAERS Safety Report 11522594 (Version 1)
Quarter: 2015Q3

REPORT INFORMATION
  Report Type: Spontaneous
  Country: US (occurrence: US)
  Receive Date: 20150918
  Receipt Date: 20150918
  Transmission Date: 20151125
  Serious: No
  Sender: FDA-Public Use
  Company Number: US-ROCHE-725627

PATIENT
  Age: 53 Year
  Sex: Female

DRUGS (2)
  1. RIBASPHERE [Suspect]
     Active Substance: RIBAVIRIN
     Indication: HEPATITIS C
     Dosage: IN DIVIDED DOSES.
     Route: 048
  2. PEGASYS [Suspect]
     Active Substance: PEGINTERFERON ALFA-2A
     Indication: HEPATITIS C
     Dosage: FORM: PRE-FILLED SYRINGE
     Route: 058

REACTIONS (11)
  - Blister [Recovering/Resolving]
  - Ageusia [Not Recovered/Not Resolved]
  - Genital ulceration [Unknown]
  - Stomatitis [Unknown]
  - Pyrexia [Unknown]
  - Insomnia [Not Recovered/Not Resolved]
  - Ulcer [Unknown]
  - Nasal ulcer [Unknown]
  - Weight decreased [Not Recovered/Not Resolved]
  - Chills [Unknown]
  - Fatigue [Not Recovered/Not Resolved]

NARRATIVE: CASE EVENT DATE: 20100226
